FAERS Safety Report 15238652 (Version 1)
Quarter: 2018Q3

REPORT INFORMATION
  Report Type: Spontaneous
  Country: GT (occurrence: GT)
  Receive Date: 20180803
  Receipt Date: 20180803
  Transmission Date: 20181010
  Serious: Yes (Other)
  Sender: FDA-Public Use
  Company Number: GT-009507513-1808GTM000297

PATIENT
  Sex: Female

DRUGS (1)
  1. NUVARING [Suspect]
     Active Substance: ETHINYL ESTRADIOL\ETONOGESTREL
     Dosage: ONE VAGINAL RING
     Route: 067

REACTIONS (4)
  - Device breakage [Unknown]
  - Vulvovaginal injury [Unknown]
  - Vaginal infection [Unknown]
  - Device breakage [Unknown]

NARRATIVE: CASE EVENT DATE: 2018
